FAERS Safety Report 5324450-4 (Version None)
Quarter: 2007Q2

REPORT INFORMATION
  Report Type: 
  Country: None (occurrence: None)
  Receive Date: 20070514
  Receipt Date: 20070502
  Transmission Date: 20071010
  Serious: Yes (Other)
  Sender: FDA-Public Use
  Company Number: US-PFIZER INC-2007036330

PATIENT
  Sex: Female

DRUGS (2)
  1. NEURONTIN [Suspect]
     Indication: THROMBOSIS
  2. NEURONTIN [Suspect]
     Indication: PAIN IN EXTREMITY

REACTIONS (10)
  - AFFECT LABILITY [None]
  - AMNESIA [None]
  - ASTHENIA [None]
  - CARDIAC FAILURE [None]
  - FLUID RETENTION [None]
  - LIVER DISORDER [None]
  - RASH [None]
  - RENAL DISORDER [None]
  - THINKING ABNORMAL [None]
  - WEIGHT INCREASED [None]
